FAERS Safety Report 25415668 (Version 1)
Quarter: 2025Q2

REPORT INFORMATION
  Report Type: Report from Study
  Country: US (occurrence: US)
  Receive Date: 20250610
  Receipt Date: 20250610
  Transmission Date: 20250717
  Serious: Yes (Other)
  Sender: ALEXION PHARMACEUTICALS
  Company Number: US-AstraZeneca-CH-00884713A

PATIENT

DRUGS (1)
  1. ACALABRUTINIB [Suspect]
     Active Substance: ACALABRUTINIB
     Indication: Chronic lymphocytic leukaemia
     Dosage: 100 MILLIGRAM, Q12H

REACTIONS (8)
  - Feeling abnormal [Unknown]
  - Dehydration [Unknown]
  - Blood pressure decreased [Unknown]
  - Platelet count decreased [Unknown]
  - Nausea [Unknown]
  - Headache [Unknown]
  - Asthenia [Unknown]
  - Gait disturbance [Unknown]
